FAERS Safety Report 8818685 (Version 1)
Quarter: 2012Q4

REPORT INFORMATION
  Report Type: 
  Country: AU (occurrence: AU)
  Receive Date: 20121001
  Receipt Date: 20121001
  Transmission Date: 20130627
  Serious: Yes (Hospitalization, Other)
  Sender: FDA-Public Use
  Company Number: PHHY2012AU083198

PATIENT
  Age: 69 Year
  Sex: Female

DRUGS (2)
  1. LEVETIRACETAM [Suspect]
     Dosage: 500 mg, BID
  2. VALPROATE SODIUM [Concomitant]
     Dosage: 500 mg, BID

REACTIONS (12)
  - Tubulointerstitial nephritis [Recovering/Resolving]
  - Renal impairment [Recovering/Resolving]
  - Oliguria [Recovering/Resolving]
  - Azotaemia [Recovering/Resolving]
  - Metabolic acidosis [Recovering/Resolving]
  - Fluid overload [Recovering/Resolving]
  - Mouth ulceration [Unknown]
  - Mucosal inflammation [Unknown]
  - Malaise [Unknown]
  - Rash [Unknown]
  - Skin exfoliation [Unknown]
  - Urinary tract infection [Unknown]
